FAERS Safety Report 13019150 (Version 1)
Quarter: 2016Q4

REPORT INFORMATION
  Report Type: Spontaneous
  Country: US (occurrence: US)
  Receive Date: 20161212
  Receipt Date: 20161212
  Transmission Date: 20170207
  Serious: No
  Sender: FDA-Public Use
  Company Number: US-ROCHE-1719608

PATIENT
  Age: 72 Year
  Sex: Female

DRUGS (9)
  1. BENADRYL DECONGESTANT [Concomitant]
     Active Substance: DIPHENHYDRAMINE HYDROCHLORIDE
     Route: 065
     Dates: start: 20130924
  2. LEVOFLOXACIN. [Concomitant]
     Active Substance: LEVOFLOXACIN
     Route: 065
     Dates: start: 20130924
  3. CLINDAMYCIN HCL [Concomitant]
     Active Substance: CLINDAMYCIN HYDROCHLORIDE
     Route: 065
     Dates: start: 20150122
  4. DIAZEPAM. [Suspect]
     Active Substance: DIAZEPAM
     Indication: PRODUCT USED FOR UNKNOWN INDICATION
     Route: 065
  5. ATORVASTATIN [Concomitant]
     Active Substance: ATORVASTATIN
     Route: 065
     Dates: start: 20150122
  6. MACROBID (UNITED STATES) [Concomitant]
     Route: 065
     Dates: start: 20130924
  7. TETRACYCLINE [Concomitant]
     Active Substance: TETRACYCLINE
     Route: 065
     Dates: start: 20130924
  8. PENICILLINS [Concomitant]
     Active Substance: PENICILLIN
     Route: 065
     Dates: start: 20111120
  9. CODEINE [Concomitant]
     Active Substance: CODEINE
     Route: 065
     Dates: start: 20111120

REACTIONS (2)
  - Drug hypersensitivity [Unknown]
  - Somnolence [Unknown]

NARRATIVE: CASE EVENT DATE: 20130924
